FAERS Safety Report 6996920-4 (Version None)
Quarter: 2010Q3

REPORT INFORMATION
  Report Type: 
  Country: None (occurrence: None)
  Receive Date: 20100918
  Receipt Date: 20090727
  Transmission Date: 20110219
  Serious: No
  Sender: FDA-Public Use
  Company Number: US-WYE-H10342609

PATIENT
  Sex: Female
  Weight: 56.75 kg

DRUGS (4)
  1. EFFEXOR XR [Suspect]
     Indication: DEPRESSION
     Dosage: 300 MG, FREQUENCY UNSPECIFIED
     Route: 048
     Dates: start: 20080101, end: 20090101
  2. EFFEXOR XR [Suspect]
     Dosage: TAPERED
     Route: 048
     Dates: start: 20090101, end: 20090101
  3. EFFEXOR XR [Suspect]
     Route: 048
     Dates: start: 20090101, end: 20090724
  4. CLARITIN [Concomitant]

REACTIONS (4)
  - DIZZINESS [None]
  - DRUG WITHDRAWAL SYNDROME [None]
  - INTENTIONAL DRUG MISUSE [None]
  - NAUSEA [None]
